FAERS Safety Report 8438181-5 (Version None)
Quarter: 2012Q2

REPORT INFORMATION
  Report Type: 
  Country: None (occurrence: None)
  Receive Date: 20120614
  Receipt Date: 20120605
  Transmission Date: 20120825
  Serious: Yes (Hospitalization, Other)
  Sender: FDA-Public Use
  Company Number: FI-ROCHE-1058705

PATIENT
  Sex: Female

DRUGS (7)
  1. PRIMASPAN [Concomitant]
     Route: 048
  2. SIMVASTATIN [Concomitant]
     Route: 048
  3. AVASTIN [Suspect]
     Indication: AGE-RELATED MACULAR DEGENERATION
     Dosage: 25 MG/ML
     Route: 050
     Dates: start: 20120309, end: 20120309
  4. EMCONCOR CHF [Concomitant]
     Route: 048
  5. NITROSID [Concomitant]
     Route: 048
  6. PLAVIX [Concomitant]
     Route: 048
  7. OFTAQUIX [Concomitant]
     Route: 047
     Dates: start: 20120308, end: 20120313

REACTIONS (2)
  - ENDOPHTHALMITIS [None]
  - TRANSMISSION OF AN INFECTIOUS AGENT VIA A MEDICINAL PRODUCT [None]
